FAERS Safety Report 8945526 (Version 1)
Quarter: 2012Q4

REPORT INFORMATION
  Report Type: 
  Country: JP (occurrence: JP)
  Receive Date: 20121205
  Receipt Date: 20121205
  Transmission Date: 20130627
  Serious: Yes (Hospitalization, Disabling)
  Sender: FDA-Public Use
  Company Number: JP-PFIZER INC-2012302586

PATIENT
  Age: 72 Year
  Sex: Male

DRUGS (1)
  1. TORISEL [Suspect]
     Indication: RENAL CELL CARCINOMA
     Dosage: 25 mg, weekly
     Route: 042
     Dates: start: 20120821, end: 20121019

REACTIONS (3)
  - Pulmonary infarction [Recovered/Resolved with Sequelae]
  - Disease progression [Unknown]
  - Renal cell carcinoma [Unknown]
